FAERS Safety Report 9672177 (Version 1)
Quarter: 2013Q4

REPORT INFORMATION
  Report Type: Spontaneous
  Country: FR (occurrence: FR)
  Receive Date: 20131106
  Receipt Date: 20131106
  Transmission Date: 20140711
  Serious: Yes (Hospitalization, Other)
  Sender: FDA-Public Use
  Company Number: FR-MYLANLABS-2013S1024135

PATIENT
  Age: 75 Year
  Sex: Female

DRUGS (5)
  1. SERTRALINE [Suspect]
     Indication: MAJOR DEPRESSION
     Dosage: 50MG DAILY, THEN INCREASED TO 100MG DAILY 1MO LATER
     Route: 065
  2. SERTRALINE [Interacting]
     Indication: MAJOR DEPRESSION
     Dosage: 100MG DAILY
     Route: 065
  3. RASAGILINE [Interacting]
     Indication: PARKINSON^S DISEASE
     Dosage: 1MG DAILY
     Route: 065
  4. AMANTADINE [Interacting]
     Indication: PARKINSON^S DISEASE
     Route: 065
  5. STALEVO [Concomitant]
     Indication: PARKINSON^S DISEASE
     Dosage: LEVODOPA 200MG/CARBIDOPA 50MG/ENTACAPONE 200MG 3 TIMES DAILY
     Route: 065

REACTIONS (16)
  - Serotonin syndrome [Recovered/Resolved]
  - Drug interaction [Recovered/Resolved]
  - Drug interaction [Recovered/Resolved]
  - Agitation [Recovered/Resolved]
  - Delusion [Recovered/Resolved]
  - Altered state of consciousness [Recovered/Resolved]
  - Hyperhidrosis [Recovered/Resolved]
  - Hyperthermia [Recovered/Resolved]
  - Blood pressure fluctuation [Recovered/Resolved]
  - Myoclonus [Recovered/Resolved]
  - Muscle rigidity [Recovered/Resolved]
  - Hyperreflexia [Recovered/Resolved]
  - Rhabdomyolysis [Recovered/Resolved]
  - Renal failure [Recovered/Resolved]
  - Dehydration [Recovered/Resolved]
  - Electroencephalogram abnormal [Recovered/Resolved]
